FAERS Safety Report 6568232-4 (Version None)
Quarter: 2010Q1

REPORT INFORMATION
  Report Type: 
  Country: None (occurrence: None)
  Receive Date: 20100203
  Receipt Date: 20100122
  Transmission Date: 20100710
  Serious: Yes (Hospitalization)
  Sender: FDA-Public Use
  Company Number: NL-ELI_LILLY_AND_COMPANY-NL201001005036

PATIENT
  Sex: Female

DRUGS (8)
  1. FORTEO [Suspect]
     Indication: OSTEOPOROSIS
     Dosage: 1 D/F, DAILY (1/D)
     Route: 058
     Dates: start: 20090801, end: 20100101
  2. CALCI CHEW D3                      /00944201/ [Concomitant]
     Indication: OSTEOPOROSIS
     Dosage: 500 MG, DAILY (1/D)
     Route: 048
     Dates: end: 20100101
  3. PREDNISOLON [Concomitant]
     Dosage: 5 MG, DAILY (1/D)
     Route: 048
  4. FOLIC ACID [Concomitant]
     Indication: MUSCULOSKELETAL PAIN
     Dosage: 5 MG, WEEKLY (1/W)
     Route: 048
  5. METHOTREXATE [Concomitant]
     Indication: MUSCULOSKELETAL PAIN
     Dosage: 12 MG, WEEKLY (1/W)
     Route: 048
  6. NEXIUM [Concomitant]
     Dosage: 20 MG, DAILY (1/D)
     Route: 048
  7. ARTHROTEC [Concomitant]
     Dosage: 50 MG, 2/D
     Route: 048
  8. TRAMADOL [Concomitant]
     Dosage: 150 MG, 2/D
     Route: 048

REACTIONS (2)
  - DELIRIUM [None]
  - HYPERCALCAEMIA [None]
